FAERS Safety Report 18523667 (Version 2)
Quarter: 2020Q4

REPORT INFORMATION
  Report Type: Report from Study
  Country: US (occurrence: US)
  Receive Date: 20201119
  Receipt Date: 20201209
  Transmission Date: 20210114
  Serious: Yes (Other)
  Sender: FDA-Public Use
  Company Number: US-JNJFOC-20201109121

PATIENT
  Sex: Female

DRUGS (2)
  1. UPTRAVI [Suspect]
     Active Substance: SELEXIPAG
     Indication: PRODUCT USED FOR UNKNOWN INDICATION
     Dosage: 200 MCG /1X DAILY AT NIGHT
     Route: 065
  2. UPTRAVI [Suspect]
     Active Substance: SELEXIPAG
     Route: 065

REACTIONS (10)
  - Ocular hyperaemia [Unknown]
  - Headache [Unknown]
  - Pain in extremity [Unknown]
  - Vomiting [Unknown]
  - Bone pain [Unknown]
  - Malaise [Unknown]
  - Diarrhoea [Unknown]
  - Pollakiuria [Unknown]
  - Facial pain [Unknown]
  - Nausea [Unknown]

NARRATIVE: CASE EVENT DATE: 202010
